FAERS Safety Report 10548372 (Version 1)
Quarter: 2014Q4

REPORT INFORMATION
  Report Type: Spontaneous
  Country: CA (occurrence: CA)
  Receive Date: 20141028
  Receipt Date: 20141028
  Transmission Date: 20150529
  Serious: Yes (Other)
  Sender: FDA-Public Use
  Company Number: CA-PFIZER INC-2014293340

PATIENT
  Age: 67 Year
  Sex: Female

DRUGS (5)
  1. ACTEMRA [Suspect]
     Active Substance: TOCILIZUMAB
     Indication: RHEUMATOID ARTHRITIS
     Dosage: 260 MG, EVERY 4 WEEKS
     Route: 042
     Dates: start: 20130815, end: 20140515
  2. CELEBREX [Suspect]
     Active Substance: CELECOXIB
  3. SIMPONI [Suspect]
     Active Substance: GOLIMUMAB
     Dosage: HAD 3 DOSES
  4. VITAMIN D [Suspect]
     Active Substance: CHOLECALCIFEROL
  5. FLOMAX [Suspect]
     Active Substance: TAMSULOSIN HYDROCHLORIDE

REACTIONS (4)
  - Anaemia [Unknown]
  - Drug ineffective [Unknown]
  - Gastric disorder [Unknown]
  - Osteomyelitis [Recovering/Resolving]

NARRATIVE: CASE EVENT DATE: 2014
